FAERS Safety Report 5509438-2 (Version None)
Quarter: 2007Q4

REPORT INFORMATION
  Report Type: 
  Country: None (occurrence: None)
  Receive Date: 20071107
  Receipt Date: 20071026
  Transmission Date: 20080405
  Serious: Yes (Other)
  Sender: FDA-Public Use
  Company Number: JP-PFIZER INC-2007091031

PATIENT
  Age: 78 Year
  Sex: Female

DRUGS (12)
  1. XALATAN [Suspect]
     Route: 047
  2. NITROPEN [Concomitant]
     Route: 060
  3. SIGMART [Concomitant]
  4. MUCOSOLVAN [Concomitant]
  5. NATRIX [Concomitant]
  6. RHYTHMY [Concomitant]
  7. MICARDIS [Concomitant]
  8. ALFACALCIDOL [Concomitant]
  9. ALL OTHER THERAPEUTIC PRODUCTS [Concomitant]
  10. SOLANAX [Concomitant]
  11. GASTROZEPIN [Concomitant]
  12. SOLDOL E [Concomitant]

REACTIONS (1)
  - ELECTROCARDIOGRAM QT PROLONGED [None]
